FAERS Safety Report 6987422-X (Version None)
Quarter: 2010Q3

REPORT INFORMATION
  Report Type: 
  Country: None (occurrence: None)
  Receive Date: 20100916
  Receipt Date: 20100910
  Transmission Date: 20110219
  Serious: Yes (Death, Hospitalization, Other)
  Sender: FDA-Public Use
  Company Number: US-BRISTOL-MYERS SQUIBB COMPANY-15280951

PATIENT
  Age: 83 Year
  Sex: Male

DRUGS (2)
  1. COUMADIN [Suspect]
  2. HALDOL [Suspect]

REACTIONS (4)
  - DRUG INTERACTION [None]
  - EMBOLISM ARTERIAL [None]
  - MEDICATION ERROR [None]
  - PULMONARY HAEMORRHAGE [None]
